FAERS Safety Report 19479952 (Version 1)
Quarter: 2021Q3

REPORT INFORMATION
  Report Type: Spontaneous
  Country: GB (occurrence: GB)
  Receive Date: 20210701
  Receipt Date: 20210701
  Transmission Date: 20211014
  Serious: Yes (Other)
  Sender: FDA-Public Use
  Company Number: GB-DEXPHARM-20210945

PATIENT
  Age: 27 Year
  Sex: Male
  Weight: 120.65 kg

DRUGS (7)
  1. FOSTAIR [Concomitant]
     Active Substance: BECLOMETHASONE\FORMOTEROL
  2. VENLAFAXINE [Suspect]
     Active Substance: VENLAFAXINE HYDROCHLORIDE
     Indication: MAJOR DEPRESSION
     Dosage: 2 SEPARATED DOSES
     Route: 048
     Dates: start: 20210308, end: 20210621
  3. LINACLOTIDE [Concomitant]
     Active Substance: LINACLOTIDE
  4. SALBUTAMOL [Concomitant]
     Active Substance: ALBUTEROL
  5. BUTRANS [Concomitant]
     Active Substance: BUPRENORPHINE
  6. BACLOFEN. [Concomitant]
     Active Substance: BACLOFEN
  7. FEXOFENADINE [Concomitant]
     Active Substance: FEXOFENADINE HYDROCHLORIDE

REACTIONS (6)
  - Anger [Unknown]
  - Incorrect dose administered [Unknown]
  - Constipation [Not Recovered/Not Resolved]
  - Depression [Unknown]
  - Depersonalisation/derealisation disorder [Unknown]
  - Tremor [Unknown]

NARRATIVE: CASE EVENT DATE: 20210317
